FAERS Safety Report 18412457 (Version 1)
Quarter: 2020Q4

REPORT INFORMATION
  Report Type: Spontaneous
  Country: DK (occurrence: DK)
  Receive Date: 20201021
  Receipt Date: 20201021
  Transmission Date: 20210114
  Serious: Yes (Other)
  Sender: FDA-Public Use
  Company Number: DK-MYLANLABS-2020M1089047

PATIENT
  Age: 56 Year
  Sex: Female

DRUGS (2)
  1. ISOPTIN [Suspect]
     Active Substance: VERAPAMIL HYDROCHLORIDE
     Indication: HYPERTENSION
     Dosage: 240 MILLIGRAM, QD
     Route: 048
     Dates: start: 20200824, end: 20200907
  2. VAGIFEM [Concomitant]
     Active Substance: ESTRADIOL
     Indication: HORMONE THERAPY
     Dosage: 20 MICROGRAM, QW (1 TABLET THURSDAY AND SUNDAY EVERY WEEK)
     Route: 067
     Dates: start: 20151019

REACTIONS (2)
  - Disturbance in attention [Recovered/Resolved]
  - Hallucination [Recovered/Resolved]

NARRATIVE: CASE EVENT DATE: 202008
